APPROVED DRUG PRODUCT: DROSPIRENONE AND ETHINYL ESTRADIOL
Active Ingredient: DROSPIRENONE; ETHINYL ESTRADIOL
Strength: 3MG;0.03MG
Dosage Form/Route: TABLET;ORAL-28
Application: A202131 | Product #001 | TE Code: AB
Applicant: XIROMED LLC
Approved: May 4, 2015 | RLD: No | RS: No | Type: RX